FAERS Safety Report 10494825 (Version 1)
Quarter: 2014Q4

REPORT INFORMATION
  Report Type: Spontaneous
  Country: US (occurrence: None)
  Receive Date: 20141001
  Receipt Date: 20141001
  Transmission Date: 20150528
  Serious: Yes (Other)
  Sender: FDA-Public Use
  Company Number: CIO14064883

PATIENT
  Sex: Female

DRUGS (1)
  1. CREST PRO-HEALTH ALL-AROUND PROTECTION [Suspect]
     Active Substance: STANNOUS FLUORIDE
     Dosage: INTRAORAL
     Dates: start: 20140916

REACTIONS (3)
  - Dental implantation [None]
  - Expired product administered [None]
  - Gingivitis [None]
